FAERS Safety Report 24389565 (Version 1)
Quarter: 2024Q4

REPORT INFORMATION
  Report Type: Other
  Country: FR (occurrence: FR)
  Receive Date: 20241003
  Receipt Date: 20241003
  Transmission Date: 20250115
  Serious: Yes (Hospitalization)
  Sender: ZYDUS PHARM
  Company Number: None

PATIENT

DRUGS (4)
  1. GABAPENTIN [Suspect]
     Active Substance: GABAPENTIN
     Indication: Intentional overdose
     Dosage: 20 DOSAGE FORM, 1 TOTAL
     Route: 048
     Dates: start: 20240814, end: 20240814
  2. OLANZAPINE [Suspect]
     Active Substance: OLANZAPINE
     Indication: Intentional overdose
     Dosage: 20 DOSAGE FORM, 1 TOTAL
     Route: 048
     Dates: start: 20240814, end: 20240814
  3. DIAZEPAM [Suspect]
     Active Substance: DIAZEPAM
     Indication: Intentional overdose
     Dosage: 20 DOSAGE FORM, 1 TOTAL
     Route: 048
     Dates: start: 20240814, end: 20240814
  4. MORPHINE [Suspect]
     Active Substance: MORPHINE
     Indication: Intentional overdose
     Dosage: 20 DOSAGE FORM, 1 TOTAL
     Route: 048
     Dates: start: 20240814, end: 20240814

REACTIONS (4)
  - Bradypnoea [Recovered/Resolved]
  - Coma [Recovered/Resolved]
  - Miosis [Recovered/Resolved]
  - Poisoning deliberate [Recovered/Resolved]

NARRATIVE: CASE EVENT DATE: 20240814
